FAERS Safety Report 5498969-X (Version None)
Quarter: 2007Q4

REPORT INFORMATION
  Report Type: 
  Country: None (occurrence: None)
  Receive Date: 20071026
  Receipt Date: 20070510
  Transmission Date: 20080405
  Serious: No
  Sender: FDA-Public Use
  Company Number: A0650900A

PATIENT
  Sex: Male

DRUGS (4)
  1. ADVAIR DISKUS 100/50 [Suspect]
     Route: 055
     Dates: end: 20060101
  2. SINGULAIR [Concomitant]
     Route: 048
  3. ALBUTEROL [Concomitant]
     Route: 055
  4. VITAMINS WITH FLUORIDE [Concomitant]

REACTIONS (1)
  - ADVERSE EVENT [None]
